FAERS Safety Report 19702708 (Version 1)
Quarter: 2021Q3

REPORT INFORMATION
  Report Type: Spontaneous
  Country: US (occurrence: US)
  Receive Date: 20210815
  Receipt Date: 20210815
  Transmission Date: 20211014
  Serious: No
  Sender: FDA-Public Use
  Company Number: US-BLUEPRINT MEDICINES CORPORATION-SP-US-2021-001207

PATIENT
  Age: 78 Year
  Sex: Female

DRUGS (1)
  1. AYVAKIT [Suspect]
     Active Substance: AVAPRITINIB
     Indication: GASTROINTESTINAL STROMAL TUMOUR
     Dosage: 1 TABLET BY MOUTH DAILY ON EMPTY STOMACH. SWALLOW TABLETS WHOLE. AVOID GRAPEFRUIT PRODUCTS.
     Route: 048
     Dates: start: 20210601

REACTIONS (8)
  - Decreased appetite [Unknown]
  - Limb injury [Unknown]
  - Drug ineffective [Unknown]
  - Memory impairment [Unknown]
  - Taste disorder [Unknown]
  - Fall [Unknown]
  - Balance disorder [Unknown]
  - Neoplasm progression [Unknown]
